FAERS Safety Report 9308257 (Version 2)
Quarter: 2013Q4

REPORT INFORMATION
  Report Type: Report from Study
  Country: US (occurrence: US)
  Receive Date: 20130524
  Receipt Date: 20131007
  Transmission Date: 20140711
  Serious: Yes (Hospitalization, Congenital Anomaly, Other)
  Sender: FDA-Public Use
  Company Number: US-TEVA-407729USA

PATIENT
  Age: 0 Day
  Sex: 0

DRUGS (2)
  1. CLARAVIS [Suspect]
  2. ORAL CONTRACEPTIVE NOS [Concomitant]

REACTIONS (3)
  - Ear malformation [Not Recovered/Not Resolved]
  - Congenital central nervous system anomaly [Not Recovered/Not Resolved]
  - Heart disease congenital [Not Recovered/Not Resolved]
